FAERS Safety Report 6238492-8 (Version None)
Quarter: 2009Q2

REPORT INFORMATION
  Report Type: 
  Country: None (occurrence: None)
  Receive Date: 20090622
  Receipt Date: 20090611
  Transmission Date: 20091009
  Serious: Yes (Other)
  Sender: FDA-Public Use
  Company Number: GB-ROCHE-638044

PATIENT
  Age: 36 Year
  Sex: Male

DRUGS (1)
  1. ROFERON-A [Suspect]
     Indication: HEPATITIS
     Route: 065

REACTIONS (1)
  - OSTEONECROSIS [None]
